FAERS Safety Report 7743737-9 (Version None)
Quarter: 2011Q3

REPORT INFORMATION
  Report Type: 
  Country: None (occurrence: None)
  Receive Date: 20110912
  Receipt Date: 20110902
  Transmission Date: 20111222
  Serious: Yes (Other)
  Sender: FDA-Public Use
  Company Number: US-ASTRAZENECA-2011SE52974

PATIENT
  Age: 72 Year
  Sex: Male
  Weight: 79.4 kg

DRUGS (2)
  1. NEXIUM [Suspect]
     Route: 048
  2. OMEPRAZOLE [Suspect]
     Indication: GASTROOESOPHAGEAL REFLUX DISEASE
     Route: 048
     Dates: start: 20020101

REACTIONS (3)
  - DRUG EFFECT DECREASED [None]
  - VERTIGO [None]
  - SYNCOPE [None]
